FAERS Safety Report 25679214 (Version 1)
Quarter: 2025Q3

REPORT INFORMATION
  Report Type: Report from Study
  Country: GB (occurrence: GB)
  Receive Date: 20250814
  Receipt Date: 20250814
  Transmission Date: 20251020
  Serious: Yes (Other)
  Sender: AUROBINDO
  Company Number: GB-AUROBINDO-AUR-APL-2023-010713

PATIENT
  Weight: 2.11 kg

DRUGS (5)
  1. SOTALOL [Suspect]
     Active Substance: SOTALOL
     Indication: Tachycardia foetal
     Route: 065
  2. DIGOXIN [Suspect]
     Active Substance: DIGOXIN
     Indication: Tachycardia foetal
     Dosage: 1 MILLIGRAM, ONCE A DAY
     Route: 065
  3. DIGOXIN [Suspect]
     Active Substance: DIGOXIN
     Dosage: 0.75 MILLIGRAM, ONCE A DAY
     Route: 065
  4. FLECAINIDE [Suspect]
     Active Substance: FLECAINIDE
     Indication: Tachycardia foetal
     Route: 065
  5. AMIODARONE [Suspect]
     Active Substance: AMIODARONE
     Indication: Supraventricular tachycardia
     Route: 065

REACTIONS (2)
  - Drug ineffective [Unknown]
  - Foetal exposure during pregnancy [Unknown]
